FAERS Safety Report 8702257 (Version 3)
Quarter: 2013Q1

REPORT INFORMATION
  Report Type: Spontaneous
  Country: US (occurrence: None)
  Receive Date: 20120719
  Receipt Date: 20130221
  Transmission Date: 20140127
  Serious: Yes (Hospitalization)
  Sender: FDA-Public Use
  Company Number: 2012AP001205

PATIENT
  Age: 39 Year
  Sex: Female

DRUGS (14)
  1. CITALOPRAM HYDROBROMIDE [Suspect]
     Indication: PRODUCT USED FOR UNKNOWN INDICATION
  2. GABAPENTIN [Suspect]
     Indication: PRODUCT USED FOR UNKNOWN INDICATION
  3. QUETIAPINE FUMARATE [Suspect]
     Indication: PRODUCT USED FOR UNKNOWN INDICATION
  4. BUSPIRONE HYDROCHLORIDE TABLETS, USP [Suspect]
     Indication: PRODUCT USED FOR UNKNOWN INDICATION
  5. MECLIZINE HYDROCHLORIDE [Suspect]
     Indication: PRODUCT USED FOR UNKNOWN INDICATION
  6. PROMETHAZINE [Suspect]
     Indication: PRODUCT USED FOR UNKNOWN INDICATION
  7. PROCHLORPERAZINE [Suspect]
  8. AMITRIPTYLINE [Suspect]
     Indication: PRODUCT USED FOR UNKNOWN INDICATION
  9. METHADONE HYDROCHLORIDE [Suspect]
     Indication: PELVIC PAIN
  10. ZONISAMIDE [Concomitant]
  11. METFORMIN [Concomitant]
  12. PRAVASTATIN [Concomitant]
  13. TRIMETHOPRIM SULFAMETHOXAZOLE [Concomitant]
  14. LEVOTHYROXINE [Concomitant]

REACTIONS (4)
  - Serotonin syndrome [None]
  - Urinary tract infection [None]
  - Blood sodium decreased [None]
  - Blood glucose increased [None]
